FAERS Safety Report 6539640-2 (Version None)
Quarter: 2010Q1

REPORT INFORMATION
  Report Type: 
  Country: None (occurrence: None)
  Receive Date: 20100111
  Receipt Date: 20081218
  Transmission Date: 20100710
  Serious: Yes (Death, Hospitalization, Other)
  Sender: FDA-Public Use
  Company Number: CLOF-1000351

PATIENT
  Age: 23 Year
  Sex: Male
  Weight: 98.2 kg

DRUGS (34)
  1. CLOLAR [Suspect]
     Indication: ACUTE MYELOID LEUKAEMIA
     Dosage: 40 MG/M2, ONCE, INTRAVENOUS; 20 MG/M2, ONCE, INTRAVENOUS
     Route: 042
     Dates: start: 20081121, end: 20081121
  2. CLOLAR [Suspect]
     Indication: ACUTE MYELOID LEUKAEMIA
     Dosage: 40 MG/M2, ONCE, INTRAVENOUS; 20 MG/M2, ONCE, INTRAVENOUS
     Route: 042
     Dates: start: 20081123, end: 20081123
  3. THIOTEPA [Suspect]
     Indication: ACUTE MYELOID LEUKAEMIA
     Dosage: 32 MG, QD, INTRAVENOUS
     Route: 042
     Dates: start: 20081120, end: 20081120
  4. VINORELBINE TARTRATE [Suspect]
     Indication: ACUTE MYELOID LEUKAEMIA
     Dosage: 42 MG, ONCE, INTRAVENOUS
     Route: 042
     Dates: start: 20081118, end: 20081118
  5. TOPOTECAN (TOPOTECAN HYDROCHLORIDE) [Suspect]
     Indication: ACUTE MYELOID LEUKAEMIA
     Dosage: 2.1 MG, QDX5, INTRAVENOUS
     Route: 042
     Dates: start: 20081118, end: 20081122
  6. RASBURICASE (RASBURICASE) [Concomitant]
  7. ONDANSETRON [Concomitant]
  8. AMIKACIN SULFATE [Concomitant]
  9. FOLIC ACID [Concomitant]
  10. MULTIVITAMIN [Concomitant]
  11. FUROSEMIDE [Concomitant]
  12. LEVOFLOXACIN [Concomitant]
  13. CEFEPIME [Concomitant]
  14. DOCUSATE SODIUM (DOCUSATE SODIUM) [Concomitant]
  15. CALCIUM GLUCONATE [Concomitant]
  16. MICAFUNGIN (MICAFUNGIN) [Concomitant]
  17. LINEZOLID [Concomitant]
  18. CIPROFLOXACIN [Concomitant]
  19. INSULIN GLARGINE (INSULIN GLARGINE) [Concomitant]
  20. HUMALOG [Concomitant]
  21. ALUMINUM HYDROXIDE TAB [Concomitant]
  22. MAGNESIUM SULFATE [Concomitant]
  23. PHYTONADIONE [Concomitant]
  24. HYDROCORTISONE SODIUM SUCCINATE [Concomitant]
  25. PANTOPRAZOLE SODIUM [Concomitant]
  26. HYDROXYZINE HCL [Concomitant]
  27. LACTULOSE [Concomitant]
  28. METOCLOPRAMIDE (METOCLOPRAMIDE HYDROCHLORIDE) [Concomitant]
  29. ACYCLOVIR [Concomitant]
  30. CALCIUM ACETATE (CALCIUM ACETATE) [Concomitant]
  31. AMPHOTERICIN B [Concomitant]
  32. CYTARABINE [Concomitant]
  33. PENTAMIDINE ISETHIONATE [Concomitant]
  34. LEVALBUTEROL HYDROCHLORIDE (LEVOSALBUTAMOL HYDROCHLORIDE) [Concomitant]

REACTIONS (6)
  - ANURIA [None]
  - BLOOD CULTURE POSITIVE [None]
  - HAEMODIALYSIS [None]
  - RENAL FAILURE ACUTE [None]
  - SEPSIS [None]
  - STAPHYLOCOCCAL INFECTION [None]
